FAERS Safety Report 8765787 (Version 3)
Quarter: 2013Q3

REPORT INFORMATION
  Report Type: Spontaneous
  Country: US (occurrence: US)
  Receive Date: 20120903
  Receipt Date: 20130822
  Transmission Date: 20140515
  Serious: No
  Sender: FDA-Public Use
  Company Number: US-PFIZER INC-2012215293

PATIENT
  Age: 75 Year
  Sex: Female
  Weight: 76 kg

DRUGS (10)
  1. PRISTIQ [Suspect]
     Indication: DEPRESSION
     Dosage: 50 MG, DAILY
     Route: 048
     Dates: start: 201209, end: 201209
  2. PRISTIQ [Suspect]
     Indication: MAJOR DEPRESSION
  3. LORAZEPAM [Concomitant]
     Indication: ANXIETY
     Dosage: 1 MG, 2X/DAY
     Route: 048
  4. GABAPENTIN [Concomitant]
     Indication: PAIN
     Dosage: 100 MG, 1X/DAY AT BEDTIME
  5. CALMS FORTE [Concomitant]
     Indication: INSOMNIA
     Dosage: 1 DF, 1X/DAY
     Dates: start: 201208, end: 201209
  6. VENLAFAXINE [Concomitant]
     Dosage: 75 MG, 2X/DAY
  7. WARFARIN [Concomitant]
     Dosage: 5 MG, UNK
  8. FUROSEMIDE [Concomitant]
     Dosage: 20 MG, UNK
  9. LISINOPRIL [Concomitant]
     Dosage: 40 MG, UNK
  10. POTASSIUM [Concomitant]
     Dosage: 10 MEQ, UNK

REACTIONS (4)
  - Eructation [Recovered/Resolved]
  - Retching [Recovered/Resolved]
  - Nausea [Unknown]
  - Drug ineffective [Recovered/Resolved]
